FAERS Safety Report 6742807-1 (Version None)
Quarter: 2010Q2

REPORT INFORMATION
  Report Type: 
  Country: None (occurrence: None)
  Receive Date: 20100526
  Receipt Date: 20100521
  Transmission Date: 20101027
  Serious: Yes (Death)
  Sender: FDA-Public Use
  Company Number: US-ABBOTT-10P-163-0646570-00

PATIENT
  Age: 66 Year
  Sex: Female

DRUGS (4)
  1. CYCLOSPORINE [Suspect]
     Indication: APLASIA PURE RED CELL
  2. PREDNISONE TAB [Suspect]
     Indication: APLASIA PURE RED CELL
     Route: 048
  3. CYTARABINE [Concomitant]
     Indication: DRUG USE FOR UNKNOWN INDICATION
  4. IDARUBICIN HCL [Concomitant]
     Indication: DRUG USE FOR UNKNOWN INDICATION

REACTIONS (1)
  - ACUTE MYELOID LEUKAEMIA [None]
